FAERS Safety Report 26051281 (Version 2)
Quarter: 2025Q4

REPORT INFORMATION
  Report Type: Report from Study
  Country: JP (occurrence: JP)
  Receive Date: 20251117
  Receipt Date: 20251208
  Transmission Date: 20260119
  Serious: Yes (Hospitalization)
  Sender: SANOFI AVENTIS
  Company Number: JP-SA-2025SA338173

PATIENT
  Age: 1 Month
  Sex: Male

DRUGS (3)
  1. NIRSEVIMAB [Suspect]
     Active Substance: NIRSEVIMAB
     Indication: Antiviral prophylaxis
     Dosage: 50 MG, ANTEROLATERAL THIGH
     Route: 030
     Dates: start: 20250904
  2. FERRIC PYROPHOSPHATE [Concomitant]
     Active Substance: FERRIC PYROPHOSPHATE
     Indication: Product used for unknown indication
     Dosage: 2.8 ML/DAY
     Route: 048
     Dates: start: 20250826
  3. ALFAROL [Concomitant]
     Active Substance: ALFACALCIDOL
     Indication: Product used for unknown indication
     Dosage: 0.5 ML/DAY
     Route: 048
     Dates: start: 20250806

REACTIONS (2)
  - Respiratory syncytial virus infection [Unknown]
  - Respiratory disorder [Unknown]
